FAERS Safety Report 11252254 (Version 1)
Quarter: 2015Q3

REPORT INFORMATION
  Report Type: Spontaneous
  Country: US (occurrence: US)
  Receive Date: 20150708
  Receipt Date: 20150708
  Transmission Date: 20151125
  Serious: Yes (Hospitalization, Other)
  Sender: FDA-Public Use
  Company Number: US-ELI_LILLY_AND_COMPANY-US201307006886

PATIENT
  Age: 63 Year
  Sex: Female

DRUGS (6)
  1. PROZAC [Suspect]
     Active Substance: FLUOXETINE HYDROCHLORIDE
  2. ENOXAPARIN                         /01708202/ [Suspect]
     Active Substance: ENOXAPARIN SODIUM
     Indication: PULMONARY EMBOLISM
  3. ENOXAPARIN                         /01708202/ [Suspect]
     Active Substance: ENOXAPARIN SODIUM
     Indication: THROMBOSIS
  4. ENOXAPARIN                         /01708202/ [Suspect]
     Active Substance: ENOXAPARIN SODIUM
     Indication: DEEP VEIN THROMBOSIS
     Dosage: 60 MG, BID
     Route: 058
     Dates: start: 20130707
  5. COUMADIN [Concomitant]
     Active Substance: WARFARIN SODIUM
  6. OXYGEN. [Concomitant]
     Active Substance: OXYGEN

REACTIONS (1)
  - Pulmonary embolism [Recovering/Resolving]

NARRATIVE: CASE EVENT DATE: 20130707
